FAERS Safety Report 15763789 (Version 1)
Quarter: 2018Q4

REPORT INFORMATION
  Report Type: Spontaneous
  Country: US (occurrence: US)
  Receive Date: 20181227
  Receipt Date: 20181227
  Transmission Date: 20190205
  Serious: No
  Sender: FDA-Public Use
  Company Number: US-DRREDDYS-USA/USA/18/0102836

PATIENT
  Age: 67 Year
  Sex: Male

DRUGS (1)
  1. NICOTINE. [Suspect]
     Active Substance: NICOTINE
     Indication: SMOKING CESSATION THERAPY
     Route: 062

REACTIONS (6)
  - Product complaint [Unknown]
  - Swelling [Unknown]
  - Drug ineffective [Unknown]
  - Application site rash [Unknown]
  - Erythema [Unknown]
  - Application site pruritus [Unknown]
